FAERS Safety Report 26136976 (Version 1)
Quarter: 2025Q4

REPORT INFORMATION
  Report Type: Spontaneous
  Country: US (occurrence: US)
  Receive Date: 20251209
  Receipt Date: 20251209
  Transmission Date: 20260118
  Serious: Yes (Hospitalization)
  Sender: FRESENIUS MEDICAL CARE
  Company Number: US-FMCRTG-FMC-2512-001929

PATIENT
  Age: 44 Year
  Sex: Female
  Weight: 60.0 kg

DRUGS (3)
  1. DELFLEX WITH DEXTROSE 2.5% LOW MAGNESIUM LOW CALCIUM [Suspect]
     Active Substance: CALCIUM CHLORIDE\DEXTROSE\MAGNESIUM CHLORIDE\SODIUM CHLORIDE\SODIUM LACTATE
     Indication: End stage renal disease
     Dosage: 7 DAYS-A-WEEK, CA = 2.5 MEQ/L, MG = 0.5 MEQ/L DEXTROSE DIALYSATE SOLUTIONS, FIRST EXCHANGE VOLUME =
     Route: 033
  2. DELFLEX WITH DEXTROSE 1.5% LOW MAGNESIUM LOW CALCIUM [Suspect]
     Active Substance: CALCIUM CHLORIDE\DEXTROSE\MAGNESIUM CHLORIDE\SODIUM CHLORIDE\SODIUM LACTATE
     Indication: End stage renal disease
     Dosage: 7 DAYS-A-WEEK, CA = 2.5 MEQ/L, MG = 0.5 MEQ/L DEXTROSE DIALYSATE SOLUTIONS, FIRST EXCHANGE VOLUME =
     Route: 033
  3. DELFLEX WITH DEXTROSE 4.25% LOW MAGNESIUM LOW CALCIUM [Suspect]
     Active Substance: CALCIUM CHLORIDE\DEXTROSE\MAGNESIUM CHLORIDE\SODIUM CHLORIDE\SODIUM LACTATE
     Indication: End stage renal disease
     Dosage: 7 DAYS-A-WEEK, CA = 2.5 MEQ/L, MG = 0.5 MEQ/L DEXTROSE DIALYSATE SOLUTIONS, FIRST EXCHANGE VOLUME =
     Route: 033

REACTIONS (1)
  - Peritonitis bacterial [Recovered/Resolved]

NARRATIVE: CASE EVENT DATE: 20251107
